FAERS Safety Report 12007960 (Version 1)
Quarter: 2016Q1

REPORT INFORMATION
  Report Type: Spontaneous
  Country: US (occurrence: US)
  Receive Date: 20160205
  Receipt Date: 20160205
  Transmission Date: 20160526
  Serious: No
  Sender: FDA-Public Use
  Company Number: US-009507513-1601USA010988

PATIENT

DRUGS (1)
  1. NOXAFIL [Suspect]
     Active Substance: POSACONAZOLE
     Dosage: LOADING DOES: 300 MG TWICE ON THE FIRST DAY
     Route: 048

REACTIONS (2)
  - Adverse event [Unknown]
  - Drug dose omission [Unknown]
